FAERS Safety Report 4771865-9 (Version None)
Quarter: 2005Q3

REPORT INFORMATION
  Report Type: 
  Country: None (occurrence: None)
  Receive Date: 20050916
  Receipt Date: 20050907
  Transmission Date: 20060218
  Serious: Yes (Death, Hospitalization)
  Sender: FDA-Public Use
  Company Number: US-JNJFOC-20050902420

PATIENT
  Age: 40 Year
  Sex: Female

DRUGS (12)
  1. ACETAMINOPHEN [Suspect]
     Route: 048
  2. ACETAMINOPHEN [Suspect]
     Indication: DRUG USE FOR UNKNOWN INDICATION
     Route: 048
  3. OPIOID [Suspect]
     Indication: DRUG USE FOR UNKNOWN INDICATION
     Route: 048
  4. METHADONE HCL [Concomitant]
  5. ACETAMINOPHEN/OXYCODONE [Concomitant]
     Route: 048
  6. ACETAMINOPHEN/OXYCODONE [Concomitant]
     Route: 048
  7. ATORVASTATIN CALCIUM [Concomitant]
  8. METFORMIN [Concomitant]
  9. INSULIN [Concomitant]
  10. VALACYCLOVIR HCL [Concomitant]
  11. VALPROIC ACID [Concomitant]
  12. CLONAZEPAM [Concomitant]

REACTIONS (8)
  - AGGRESSION [None]
  - BRAIN DAMAGE [None]
  - HEPATIC FAILURE [None]
  - INTENTIONAL MISUSE [None]
  - LOSS OF CONSCIOUSNESS [None]
  - OVERDOSE [None]
  - RENAL FAILURE [None]
  - VOMITING [None]
